FAERS Safety Report 15352806 (Version 1)
Quarter: 2018Q3

REPORT INFORMATION
  Report Type: Spontaneous
  Country: GR (occurrence: GR)
  Receive Date: 20180905
  Receipt Date: 20180905
  Transmission Date: 20181010
  Serious: Yes (Death)
  Sender: FDA-Public Use
  Company Number: PHHY2018GR089275

PATIENT
  Age: 73 Year
  Sex: Male
  Weight: 75 kg

DRUGS (7)
  1. ERCEFURYL [Concomitant]
     Active Substance: NIFUROXAZIDE
     Indication: DIARRHOEA
     Dosage: 5 ML, Q6H
     Route: 048
     Dates: start: 20180731, end: 20180806
  2. SALOFALK [Concomitant]
     Active Substance: MESALAMINE
     Indication: COLITIS
     Dosage: 0.5 MG, Q8H
     Route: 048
     Dates: start: 20180731, end: 20180806
  3. DEXAMETHASONE. [Concomitant]
     Active Substance: DEXAMETHASONE
     Indication: OEDEMA
     Dosage: 8 MG, Q8H
     Route: 042
     Dates: start: 20180807
  4. VALTREX [Concomitant]
     Active Substance: VALACYCLOVIR HYDROCHLORIDE
     Indication: PROPHYLAXIS
     Dosage: 500 MG, QD
     Route: 048
     Dates: start: 20180807
  5. FLAGYL [Concomitant]
     Active Substance: METRONIDAZOLE\METRONIDAZOLE HYDROCHLORIDE
     Indication: COLITIS
  6. FLAGYL [Concomitant]
     Active Substance: METRONIDAZOLE\METRONIDAZOLE HYDROCHLORIDE
     Indication: DIARRHOEA
     Dosage: 500 MG, Q8H
     Route: 048
     Dates: start: 20180731, end: 20180807
  7. RYDAPT [Suspect]
     Active Substance: MIDOSTAURIN
     Indication: SYSTEMIC MASTOCYTOSIS
     Dosage: 100 MG, Q12H
     Route: 048
     Dates: start: 20180727, end: 20180807

REACTIONS (6)
  - Acute kidney injury [Fatal]
  - Acute respiratory distress syndrome [Fatal]
  - Haematuria [Fatal]
  - Subcutaneous emphysema [Fatal]
  - Urinary bladder haemorrhage [Fatal]
  - Capillary leak syndrome [Fatal]

NARRATIVE: CASE EVENT DATE: 20180807
